FAERS Safety Report 8999392 (Version 1)
Quarter: 2013Q1

REPORT INFORMATION
  Report Type: Spontaneous
  Country: TR (occurrence: TR)
  Receive Date: 20130103
  Receipt Date: 20130103
  Transmission Date: 20140127
  Serious: Yes (Hospitalization)
  Sender: FDA-Public Use
  Company Number: TR-PFIZER INC-2012331164

PATIENT
  Age: 55 Year
  Sex: Female

DRUGS (1)
  1. FLUOROURACIL [Suspect]
     Indication: COLON CANCER
     Dosage: UNK
     Route: 040

REACTIONS (1)
  - Myopericarditis [Recovered/Resolved]
